FAERS Safety Report 8590302-X (Version None)
Quarter: 2012Q3

REPORT INFORMATION
  Report Type: 
  Country: None (occurrence: None)
  Receive Date: 20120813
  Receipt Date: 20120806
  Transmission Date: 20120928
  Serious: Yes (Hospitalization)
  Sender: FDA-Public Use
  Company Number: DE-GLAXOSMITHKLINE-B0813683B

PATIENT
  Sex: Female
  Weight: 50 kg

DRUGS (2)
  1. BLINDED TRIAL MEDICATION [Suspect]
     Indication: OVARIAN CANCER RECURRENT
     Dosage: 800MG PER DAY
     Route: 048
     Dates: start: 20120514
  2. TOPOTECAN HYDROCHLORIDE [Suspect]
     Indication: OVARIAN CANCER RECURRENT
     Dosage: 1.25MG EVERY 3 WEEKS
     Route: 042
     Dates: start: 20120514

REACTIONS (2)
  - ILEUS [None]
  - GENERAL PHYSICAL HEALTH DETERIORATION [None]
